FAERS Safety Report 8831584 (Version 2)
Quarter: 2013Q1

REPORT INFORMATION
  Report Type: Spontaneous
  Country: US (occurrence: US)
  Receive Date: 20121009
  Receipt Date: 20130227
  Transmission Date: 20140127
  Serious: No
  Sender: FDA-Public Use
  Company Number: US-ASTRAZENECA-2012SE76115

PATIENT
  Age: 56 Year
  Sex: Female
  Weight: 68.9 kg

DRUGS (6)
  1. SEROQUEL XR [Suspect]
     Indication: BIPOLAR DISORDER
     Route: 048
  2. SEROQUEL XR [Suspect]
     Indication: POST-TRAUMATIC STRESS DISORDER
     Route: 048
  3. SEROQUEL XR [Suspect]
     Indication: DEPRESSION
     Route: 048
  4. SEROQUEL XR [Suspect]
     Indication: NERVOUSNESS
     Route: 048
  5. EFFEXOR [Suspect]
     Route: 048
  6. TRAZADONE [Suspect]
     Route: 065

REACTIONS (7)
  - Withdrawal syndrome [Unknown]
  - Sleep disorder due to general medical condition, insomnia type [Unknown]
  - Mood swings [Unknown]
  - Agitation [Unknown]
  - Malaise [Unknown]
  - Restless legs syndrome [Unknown]
  - Drug dose omission [Unknown]
